FAERS Safety Report 14731051 (Version 3)
Quarter: 2018Q2

REPORT INFORMATION
  Report Type: Report from Study
  Country: US (occurrence: US)
  Receive Date: 20180406
  Receipt Date: 20180508
  Transmission Date: 20180711
  Serious: Yes (Hospitalization)
  Sender: FDA-Public Use
  Company Number: US-ACTELION-A-NJ2018-170126

PATIENT
  Age: 66 Year
  Sex: Female
  Weight: 83.45 kg

DRUGS (4)
  1. UPTRAVI [Suspect]
     Active Substance: SELEXIPAG
     Dosage: 600 MCG, BID
     Route: 048
  2. UPTRAVI [Suspect]
     Active Substance: SELEXIPAG
     Indication: PULMONARY ARTERIAL HYPERTENSION
     Dosage: 1000 MCG, BID
     Route: 048
  3. UPTRAVI [Suspect]
     Active Substance: SELEXIPAG
     Dosage: 1400 MCG, BID
     Route: 048
  4. ELIQUIS [Concomitant]
     Active Substance: APIXABAN

REACTIONS (13)
  - Asthenia [Unknown]
  - Restlessness [Unknown]
  - Somnolence [Unknown]
  - Hypotension [Unknown]
  - Dyspnoea [Unknown]
  - Constipation [Unknown]
  - Decreased appetite [Unknown]
  - Pericardial drainage [Unknown]
  - Faeces discoloured [Unknown]
  - Heart rate increased [Unknown]
  - Depressed mood [Unknown]
  - Nausea [Unknown]
  - Vomiting [Unknown]

NARRATIVE: CASE EVENT DATE: 20180412
